FAERS Safety Report 9363896 (Version 1)
Quarter: 2013Q2

REPORT INFORMATION
  Report Type: Spontaneous
  Country: GB (occurrence: GB)
  Receive Date: 20130624
  Receipt Date: 20130624
  Transmission Date: 20140414
  Serious: Yes (Death, Life-Threatening, Hospitalization)
  Sender: FDA-Public Use
  Company Number: GB-009507513-1306GBR010062

PATIENT
  Age: 88 Year
  Sex: Female

DRUGS (2)
  1. ALENDRONATE SODIUM [Suspect]
     Indication: OSTEOPOROSIS PROPHYLAXIS
     Dosage: 70 MG, QW
     Route: 048
     Dates: end: 20050523
  2. PREDNISOLONE [Suspect]
     Indication: GRANULOMATOSIS WITH POLYANGIITIS
     Dosage: 50 MG, QD
     Route: 048
     Dates: end: 20050524

REACTIONS (5)
  - Pneumonia aspiration [Not Recovered/Not Resolved]
  - Inflammatory marker increased [Not Recovered/Not Resolved]
  - Oesophageal perforation [Fatal]
  - Pneumomediastinum [Not Recovered/Not Resolved]
  - Cachexia [Unknown]
